FAERS Safety Report 4448415-X (Version None)
Quarter: 2004Q3

REPORT INFORMATION
  Report Type: 
  Country: None (occurrence: None)
  Receive Date: 20040909
  Receipt Date: 20040909
  Transmission Date: 20050211
  Serious: Yes (Life-Threatening)
  Sender: FDA-Public Use
  Company Number: None

PATIENT
  Sex: Female
  Weight: 43.9989 kg

DRUGS (2)
  1. DURAGESIC  50 MCG/ HR  JANSSEN [Suspect]
     Indication: OSTEOARTHRITIS
     Dosage: 50 MCG  Q 72 HOURS
     Dates: start: 20040816, end: 20040901
  2. DURAGESIC  50 MCG/ HR  JANSSEN [Suspect]
     Indication: PAIN
     Dosage: 50 MCG  Q 72 HOURS
     Dates: start: 20040816, end: 20040901

REACTIONS (3)
  - LIVER FUNCTION TEST ABNORMAL [None]
  - RESPIRATORY DEPRESSION [None]
  - SEDATION [None]
